FAERS Safety Report 23013661 (Version 1)
Quarter: 2023Q4

REPORT INFORMATION
  Report Type: Spontaneous
  Country: GB (occurrence: GB)
  Receive Date: 20231001
  Receipt Date: 20231001
  Transmission Date: 20240110
  Serious: Yes (Other)
  Sender: FDA-Public Use
  Company Number: GB-MHRA-MED-202309181018135320-WKZBP

PATIENT
  Age: 64 Year
  Sex: Female

DRUGS (1)
  1. ATORVASTATIN [Suspect]
     Active Substance: ATORVASTATIN
     Indication: Blood cholesterol increased
     Dosage: 20 MILLIGRAM DAILY; AT NIGHT, UNIT DOSE: 20 MG, DURATION : 356 DAYS
     Route: 065
     Dates: start: 202207, end: 20230801

REACTIONS (7)
  - Depressed mood [Recovered/Resolved]
  - Myalgia [Recovered/Resolved]
  - Muscle spasms [Recovered/Resolved]
  - Fatigue [Recovered/Resolved]
  - Abnormal weight gain [Recovering/Resolving]
  - Muscular weakness [Unknown]
  - Insomnia [Unknown]

NARRATIVE: CASE EVENT DATE: 20230201
